FAERS Safety Report 7604302-7 (Version None)
Quarter: 2011Q3

REPORT INFORMATION
  Report Type: 
  Country: None (occurrence: None)
  Receive Date: 20110712
  Receipt Date: 20110630
  Transmission Date: 20111222
  Serious: Yes (Hospitalization)
  Sender: FDA-Public Use
  Company Number: PHHY2011IL58686

PATIENT
  Age: 78 Year
  Sex: Female

DRUGS (2)
  1. SANDOSTATIN LAR [Suspect]
     Indication: CARCINOID TUMOUR
     Dosage: 30 MG, EVERY 28 DAYS
     Dates: start: 20100527
  2. SANDOSTATIN LAR [Suspect]
     Dosage: 30 MG, EVERY 28 DAYS
     Dates: start: 20110515

REACTIONS (1)
  - FALL [None]
